FAERS Safety Report 7259291-4 (Version None)
Quarter: 2011Q1

REPORT INFORMATION
  Report Type: 
  Country: None (occurrence: None)
  Receive Date: 20110129
  Receipt Date: 20100801
  Transmission Date: 20110831
  Serious: No
  Sender: FDA-Public Use
  Company Number: US-ABBOTT-10P-163-0661093-00

PATIENT
  Age: 32 Year
  Sex: Male

DRUGS (10)
  1. XYREM [Concomitant]
     Indication: INSOMNIA
  2. HUMIRA [Suspect]
     Indication: PSORIASIS
     Dates: start: 20100617
  3. WELLBUTRIN XL [Concomitant]
     Indication: DEPRESSION
  4. REBOXETINE [Concomitant]
     Indication: ANTIDEPRESSANT THERAPY
     Dosage: IN THE MORNING
  5. ATIVAN [Concomitant]
     Indication: ANXIETY
     Dosage: UP TO 7 PILLS A DAY
  6. ADVIL [Concomitant]
     Indication: PRODUCT USED FOR UNKNOWN INDICATION
  7. GABAPENTIN [Concomitant]
     Indication: PAIN
  8. GABAPENTIN [Concomitant]
     Indication: INSOMNIA
  9. CYTOMEL [Concomitant]
     Indication: DEPRESSION
  10. OXYCODONE OR ROXICET [Concomitant]
     Indication: PAIN
     Dosage: 15MG-30MG, UP TO 6 PILLS A DAY

REACTIONS (21)
  - INJECTION SITE PAIN [None]
  - ERYTHEMA [None]
  - INJECTION SITE HAEMORRHAGE [None]
  - NASAL CONGESTION [None]
  - FEELING HOT [None]
  - ARTHRALGIA [None]
  - PALPITATIONS [None]
  - OEDEMA PERIPHERAL [None]
  - GASTROOESOPHAGEAL REFLUX DISEASE [None]
  - PAIN [None]
  - EYE PRURITUS [None]
  - PRURITUS [None]
  - INJECTION SITE ERYTHEMA [None]
  - INJECTION SITE PAPULE [None]
  - INJECTION SITE PRURITUS [None]
  - DIARRHOEA [None]
  - PSORIASIS [None]
  - INJECTION SITE RASH [None]
  - MUSCULOSKELETAL STIFFNESS [None]
  - JOINT RANGE OF MOTION DECREASED [None]
  - DYSPNOEA EXERTIONAL [None]
